FAERS Safety Report 11653494 (Version 1)
Quarter: 2015Q4

REPORT INFORMATION
  Report Type: Other
  Country: US (occurrence: US)
  Receive Date: 20151022
  Receipt Date: 20151022
  Transmission Date: 20160304
  Serious: Yes (Life-Threatening, Other)
  Sender: FDA-Public Use
  Company Number: US-DEP_12545_2015

PATIENT
  Age: 59 Year
  Sex: Female
  Weight: 45 kg

DRUGS (3)
  1. PAROXETINE [Concomitant]
     Active Substance: PAROXETINE\PAROXETINE HYDROCHLORIDE
     Indication: OSTEOARTHRITIS
     Route: 048
     Dates: start: 2011
  2. NUCYNTA ER [Suspect]
     Active Substance: TAPENTADOL HYDROCHLORIDE
     Indication: PROCEDURAL PAIN
     Dosage: ONE DOSE
     Route: 048
     Dates: start: 20150814, end: 20150814
  3. LEVOTHYROXINE. [Concomitant]
     Active Substance: LEVOTHYROXINE
     Indication: THYROID DISORDER
     Route: 048

REACTIONS (6)
  - Foaming at mouth [Recovered/Resolved]
  - Altered state of consciousness [Recovered/Resolved]
  - Disorganised speech [Recovered/Resolved]
  - Hypopnoea [Recovered/Resolved]
  - Speech disorder [Recovered/Resolved]
  - Incoherent [Recovered/Resolved]

NARRATIVE: CASE EVENT DATE: 20150814
